FAERS Safety Report 6047199-1 (Version None)
Quarter: 2009Q1

REPORT INFORMATION
  Report Type: 
  Country: None (occurrence: None)
  Receive Date: 20090122
  Receipt Date: 20090115
  Transmission Date: 20090719
  Serious: Yes (Other)
  Sender: FDA-Public Use
  Company Number: CA-ASTRAZENECA-2009UW01646

PATIENT
  Age: 50 Year
  Sex: Female

DRUGS (4)
  1. CRESTOR [Suspect]
     Route: 048
  2. ELMIRON [Concomitant]
  3. HYDROXYZINE [Concomitant]
  4. NEXIUM [Concomitant]
     Route: 048

REACTIONS (10)
  - ABDOMINAL DISCOMFORT [None]
  - AMNESIA [None]
  - ARTHRALGIA [None]
  - DYSPEPSIA [None]
  - DYSPNOEA [None]
  - IMPAIRED WORK ABILITY [None]
  - INFLUENZA LIKE ILLNESS [None]
  - LETHARGY [None]
  - MYALGIA [None]
  - ULCER [None]
